FAERS Safety Report 7745177-5 (Version None)
Quarter: 2011Q3

REPORT INFORMATION
  Report Type: 
  Country: None (occurrence: None)
  Receive Date: 20110907
  Receipt Date: 20110823
  Transmission Date: 20111222
  Serious: Yes (Other)
  Sender: FDA-Public Use
  Company Number: FK201101795

PATIENT
  Age: 42 Year
  Sex: Male

DRUGS (2)
  1. METHOTREXATE [Suspect]
     Indication: PEMPHIGUS
     Dates: start: 20060101
  2. CORTICOSTEROIDS (CORTICOSTEROIDS) (CORTICOSTEROIDS) [Suspect]
     Indication: PEMPHIGUS
     Dates: start: 20060101

REACTIONS (2)
  - PANCYTOPENIA [None]
  - VISCERAL LEISHMANIASIS [None]
